FAERS Safety Report 7207532-1 (Version None)
Quarter: 2010Q4

REPORT INFORMATION
  Report Type: 
  Country: None (occurrence: None)
  Receive Date: 20101221
  Receipt Date: 20101209
  Transmission Date: 20110411
  Serious: Yes (Life-Threatening)
  Sender: FDA-Public Use
  Company Number: IDA-00469

PATIENT
  Age: 83 Year
  Sex: Female

DRUGS (7)
  1. INDERAL [Suspect]
     Dosage: ORAL FORMULATION: TABLET
     Route: 048
     Dates: start: 20101108
  2. COSOPT [Suspect]
     Indication: GLAUCOMA
     Dosage: FORMULATION: EYEDROPS
     Dates: start: 20101108
  3. RAMIPRIL [Concomitant]
  4. TRAVATAN [Concomitant]
  5. ALPHAGAN [Concomitant]
  6. SALURES (BENDROFLUMETHIAZIDE) [Concomitant]
  7. THROMBYL (ACETYLSALICYLIC ACID) [Concomitant]

REACTIONS (1)
  - BRADYCARDIA [None]
